FAERS Safety Report 5283024-4 (Version None)
Quarter: 2007Q1

REPORT INFORMATION
  Report Type: 
  Country: None (occurrence: None)
  Receive Date: 20070328
  Receipt Date: 20070328
  Transmission Date: 20070707
  Serious: No
  Sender: FDA-Public Use
  Company Number: None

PATIENT
  Age: 6 Month

DRUGS (1)
  1. LINDANE [Suspect]

REACTIONS (3)
  - DRUG ADMINISTRATION ERROR [None]
  - DRUG PRESCRIBING ERROR [None]
  - DRUG TOXICITY [None]
